FAERS Safety Report 7784738-4 (Version None)
Quarter: 2011Q3

REPORT INFORMATION
  Report Type: 
  Country: None (occurrence: None)
  Receive Date: 20110928
  Receipt Date: 20110919
  Transmission Date: 20111222
  Serious: Yes (Other)
  Sender: FDA-Public Use
  Company Number: US-ASTRAZENECA-2011SE56129

PATIENT
  Age: 68 Year
  Sex: Female

DRUGS (10)
  1. VIRAPAMIL [Concomitant]
     Indication: BLOOD PRESSURE ABNORMAL
  2. NEVOTORACIDE [Concomitant]
     Dosage: ONCE
  3. CRESTOR [Suspect]
     Indication: BLOOD CHOLESTEROL ABNORMAL
     Route: 048
     Dates: start: 20100119
  4. ESTRACE 1% CREAM [Concomitant]
     Indication: PRODUCT USED FOR UNKNOWN INDICATION
  5. CRESTOR [Suspect]
     Route: 048
     Dates: start: 20100901, end: 20110916
  6. METFORMIN HCL [Concomitant]
     Indication: DIABETES MELLITUS
  7. ALPRAZOLAM [Concomitant]
     Indication: SLEEP DISORDER
  8. BENOCAR [Concomitant]
     Indication: PROPHYLAXIS
  9. CELECSA [Concomitant]
     Indication: PRODUCT USED FOR UNKNOWN INDICATION
  10. BETA BLOCKERS [Suspect]
     Route: 065

REACTIONS (8)
  - MIGRAINE [None]
  - BLOOD CALCIUM INCREASED [None]
  - BACK PAIN [None]
  - NEOPLASM MALIGNANT [None]
  - BONE PAIN [None]
  - ADVERSE EVENT [None]
  - HEADACHE [None]
  - DRUG DOSE OMISSION [None]
